FAERS Safety Report 24971712 (Version 1)
Quarter: 2025Q1

REPORT INFORMATION
  Report Type: Spontaneous
  Country: US (occurrence: US)
  Receive Date: 20250214
  Receipt Date: 20250214
  Transmission Date: 20250409
  Serious: No
  Sender: PFIZER
  Company Number: US-PFIZER INC-202500032689

PATIENT
  Age: 66 Year
  Sex: Female

DRUGS (1)
  1. IBRANCE [Suspect]
     Active Substance: PALBOCICLIB
     Indication: Fibrosarcoma metastatic
     Route: 048

REACTIONS (7)
  - Neoplasm progression [Unknown]
  - Fatigue [Unknown]
  - Decreased appetite [Unknown]
  - Product dose omission in error [Unknown]
  - Arthralgia [Unknown]
  - Dry mouth [Unknown]
  - Off label use [Unknown]

NARRATIVE: CASE EVENT DATE: 20241201
